FAERS Safety Report 9390735 (Version 1)
Quarter: 2013Q3

REPORT INFORMATION
  Report Type: Spontaneous
  Country: DE (occurrence: DE)
  Receive Date: 20130709
  Receipt Date: 20130709
  Transmission Date: 20140515
  Serious: Yes (Other)
  Sender: FDA-Public Use
  Company Number: DE-009507513-1307DEU003129

PATIENT
  Sex: Female

DRUGS (1)
  1. TRUSOPT-S 20MG/ML AUGENTROPFEN IM EINZELDOSISBEHALTNIS [Suspect]
     Dosage: UNK, TID
     Route: 047

REACTIONS (5)
  - Blindness transient [Unknown]
  - Eye irritation [Unknown]
  - Dry eye [Unknown]
  - Vision blurred [Unknown]
  - Eye pain [Unknown]
